FAERS Safety Report 9712614 (Version 3)
Quarter: 2014Q2

REPORT INFORMATION
  Report Type: Spontaneous
  Country: US (occurrence: US)
  Receive Date: 20131126
  Receipt Date: 20140510
  Transmission Date: 20141212
  Serious: No
  Sender: FDA-Public Use
  Company Number: US-BRISTOL-MYERS SQUIBB COMPANY-19205129

PATIENT
  Age: 70 Year
  Sex: Female
  Weight: 86.17 kg

DRUGS (3)
  1. BYDUREON [Suspect]
     Indication: TYPE 2 DIABETES MELLITUS
     Route: 058
     Dates: start: 201307
  2. METFORMIN HCL TABS 500MG [Suspect]
  3. VICTOZA [Concomitant]

REACTIONS (4)
  - Underdose [Unknown]
  - Drug ineffective [Unknown]
  - Dry mouth [Unknown]
  - Dysgeusia [Unknown]
